FAERS Safety Report 7063270-X (Version None)
Quarter: 2010Q4

REPORT INFORMATION
  Report Type: 
  Country: None (occurrence: None)
  Receive Date: 20101026
  Receipt Date: 20100622
  Transmission Date: 20110411
  Serious: Yes (Other)
  Sender: FDA-Public Use
  Company Number: US-PFIZER INC-2010077730

PATIENT
  Age: 66 Year
  Sex: Female

DRUGS (1)
  1. LIPITOR [Suspect]
     Dosage: UNK

REACTIONS (2)
  - HYPERSENSITIVITY [None]
  - URTICARIA [None]
